FAERS Safety Report 8593660-5 (Version None)
Quarter: 2012Q3

REPORT INFORMATION
  Report Type: 
  Country: None (occurrence: None)
  Receive Date: 20120814
  Receipt Date: 20120807
  Transmission Date: 20120928
  Serious: Yes (Other)
  Sender: FDA-Public Use
  Company Number: CA-UCBSA-062995

PATIENT
  Age: 65 Year
  Sex: Female

DRUGS (12)
  1. CIMZIA [Suspect]
     Indication: RHEUMATOID ARTHRITIS
     Route: 058
     Dates: start: 20120514, end: 20120611
  2. PREDNISONE TAB [Concomitant]
     Dosage: 10 MG IN MORNING AND 5 MG AT NIGHT
     Route: 048
  3. DIOVAN [Concomitant]
     Indication: HYPERTENSION
     Route: 048
  4. ASPIRIN [Concomitant]
     Indication: PROPHYLAXIS
     Route: 048
  5. TYLENOL W/ CODEINE NO. 3 [Concomitant]
     Indication: ANALGESIC THERAPY
     Dosage: 1-2 TABS Q 4-6 HOURS
     Route: 048
  6. LEVOTHYROXINE SODIUM [Concomitant]
     Indication: HYPERTHYROIDISM
     Route: 048
  7. CIMZIA [Suspect]
     Route: 058
     Dates: start: 20120625, end: 20120101
  8. PREDNISONE TAB [Concomitant]
     Indication: RHEUMATOID ARTHRITIS
     Route: 048
     Dates: start: 20020501
  9. OMEPRAZOLE (PRISOLEC) [Concomitant]
     Indication: GASTROOESOPHAGEAL REFLUX PROPHYLAXIS
     Route: 048
  10. HYDROMORPH [Concomitant]
     Indication: ANALGESIC THERAPY
     Route: 048
  11. CODEINE SULFATE [Concomitant]
     Indication: PAIN
  12. CIPROFLOXACIN HCL [Concomitant]
     Route: 048

REACTIONS (10)
  - PYREXIA [None]
  - HAEMOGLOBIN DECREASED [None]
  - RHEUMATOID ARTHRITIS [None]
  - CHILLS [None]
  - WHITE BLOOD CELL COUNT DECREASED [None]
  - ARTHRALGIA [None]
  - NAUSEA [None]
  - VOMITING [None]
  - JOINT SWELLING [None]
  - CANDIDIASIS [None]
